FAERS Safety Report 16663053 (Version 1)
Quarter: 2019Q3

REPORT INFORMATION
  Report Type: Report from Study
  Country: US (occurrence: US)
  Receive Date: 20190802
  Receipt Date: 20190802
  Transmission Date: 20191004
  Serious: No
  Sender: FDA-Public Use
  Company Number: US-EXELIXIS-CABO-19020265

PATIENT
  Sex: Male

DRUGS (26)
  1. FOLIC ACID. [Concomitant]
     Active Substance: FOLIC ACID
  2. SERTRALINE [Concomitant]
     Active Substance: SERTRALINE HYDROCHLORIDE
  3. WELLBUTRIN [Concomitant]
     Active Substance: BUPROPION HYDROCHLORIDE
  4. ZETIA [Concomitant]
     Active Substance: EZETIMIBE
  5. BUPROPION. [Concomitant]
     Active Substance: BUPROPION
  6. DIAZEPAM. [Concomitant]
     Active Substance: DIAZEPAM
  7. RAMIPRIL. [Concomitant]
     Active Substance: RAMIPRIL
  8. CABOMETYX [Suspect]
     Active Substance: CABOZANTINIB S-MALATE
     Dosage: 20 MG EVERY OTHER DAY, ALTER 40 MG EVERY OTHER DAY
     Route: 048
     Dates: start: 20190314
  9. LIPITOR [Concomitant]
     Active Substance: ATORVASTATIN CALCIUM
  10. METOPROLOL SUCCINATE. [Concomitant]
     Active Substance: METOPROLOL SUCCINATE
  11. PILOCARPINE. [Concomitant]
     Active Substance: PILOCARPINE
  12. SYMBICORT [Concomitant]
     Active Substance: BUDESONIDE\FORMOTEROL FUMARATE DIHYDRATE
  13. AMLODIPINE [Concomitant]
     Active Substance: AMLODIPINE BESYLATE
  14. CHLORHEX [Concomitant]
     Active Substance: CHLORHEXIDINE GLUCONATE
  15. OXYCODONE [Concomitant]
     Active Substance: OXYCODONE
  16. TOPIRAMATE. [Concomitant]
     Active Substance: TOPIRAMATE
  17. FLUTICASONE. [Concomitant]
     Active Substance: FLUTICASONE
  18. OMEPRAZOLE. [Concomitant]
     Active Substance: OMEPRAZOLE
  19. VITAMIN C [Concomitant]
     Active Substance: ASCORBIC ACID
  20. LORAZEPAM. [Concomitant]
     Active Substance: LORAZEPAM
  21. METHYLPREDNISOLONE. [Concomitant]
     Active Substance: METHYLPREDNISOLONE
  22. PRILOSEC [Concomitant]
     Active Substance: OMEPRAZOLE MAGNESIUM
  23. PROBIOTIC [Concomitant]
     Active Substance: PROBIOTICS NOS
  24. COQ10 [Concomitant]
     Active Substance: UBIDECARENONE
  25. CABOMETYX [Suspect]
     Active Substance: CABOZANTINIB S-MALATE
     Indication: RENAL CANCER
     Dosage: 60 MG, QD
     Route: 048
     Dates: start: 20190314
  26. ASPIRIN. [Concomitant]
     Active Substance: ASPIRIN

REACTIONS (1)
  - Adverse drug reaction [Unknown]
